FAERS Safety Report 11637393 (Version 2)
Quarter: 2015Q4

REPORT INFORMATION
  Report Type: Spontaneous
  Country: IT (occurrence: IT)
  Receive Date: 20151016
  Receipt Date: 20151117
  Transmission Date: 20160304
  Serious: Yes (Other)
  Sender: FDA-Public Use
  Company Number: IT-PFIZER INC-2015334983

PATIENT
  Age: 63 Year
  Sex: Female
  Weight: 96 kg

DRUGS (3)
  1. CYCLOPHOSPHAMIDE. [Suspect]
     Active Substance: CYCLOPHOSPHAMIDE
     Indication: BREAST CANCER
     Dosage: 900 MG, CYCLIC
     Route: 042
     Dates: start: 20141125
  2. FLUOROURACIL. [Suspect]
     Active Substance: FLUOROURACIL
     Indication: BREAST CANCER
     Dosage: 900 MG, CYCLIC
     Route: 042
     Dates: start: 20141125
  3. EPIRUBICIN HCL [Suspect]
     Active Substance: EPIRUBICIN HYDROCHLORIDE
     Indication: BREAST CANCER
     Dosage: 160 MG, CYCLIC
     Route: 042
     Dates: start: 20141125

REACTIONS (4)
  - Depression [Recovering/Resolving]
  - Constipation [Recovering/Resolving]
  - Hyperglycaemia [Recovering/Resolving]
  - Mucosal inflammation [Recovering/Resolving]

NARRATIVE: CASE EVENT DATE: 20150226
